FAERS Safety Report 20677000 (Version 1)
Quarter: 2022Q2

REPORT INFORMATION
  Report Type: Spontaneous
  Country: US (occurrence: US)
  Receive Date: 20220406
  Receipt Date: 20220406
  Transmission Date: 20220721
  Serious: No
  Sender: FDA-Public Use
  Company Number: US-EyePoint Pharmaceuticals, Inc.-US-EYP-21-00056

PATIENT

DRUGS (1)
  1. DEXYCU [Suspect]
     Active Substance: DEXAMETHASONE
     Indication: Product used for unknown indication
     Route: 031

REACTIONS (2)
  - Product residue present [Unknown]
  - Off label use [Unknown]
